FAERS Safety Report 16190479 (Version 1)
Quarter: 2019Q2

REPORT INFORMATION
  Report Type: Spontaneous
  Country: CN (occurrence: CN)
  Receive Date: 20190412
  Receipt Date: 20190412
  Transmission Date: 20190711
  Serious: Yes (Other)
  Sender: FDA-Public Use
  Company Number: CN-ROCHE-2294836

PATIENT
  Age: 49 Year
  Sex: Male

DRUGS (13)
  1. 5-FU [Concomitant]
     Active Substance: FLUOROURACIL
     Route: 065
     Dates: end: 201501
  2. CAPECITABINE. [Suspect]
     Active Substance: CAPECITABINE
     Indication: METASTASES TO LUNG
  3. 5-FU [Concomitant]
     Active Substance: FLUOROURACIL
     Route: 065
     Dates: start: 201504, end: 201707
  4. BEVACIZUMAB. [Suspect]
     Active Substance: BEVACIZUMAB
     Indication: METASTASES TO LIVER
  5. ENDOSTAR [Concomitant]
     Active Substance: ENDOSTATIN
     Dosage: FROM DAY1 TO DAY14
     Route: 065
     Dates: start: 201501, end: 201503
  6. BEVACIZUMAB. [Suspect]
     Active Substance: BEVACIZUMAB
     Indication: COLON CANCER
     Route: 065
     Dates: start: 201504, end: 201707
  7. OXALIPLATIN. [Concomitant]
     Active Substance: OXALIPLATIN
     Dosage: IN THE MORING AND IN THE EVENING
     Route: 065
     Dates: start: 201501, end: 201503
  8. RALTITREXED [Concomitant]
     Active Substance: RALTITREXED
     Dosage: Q21
     Route: 065
     Dates: start: 201501, end: 201503
  9. OXALIPLATIN. [Concomitant]
     Active Substance: OXALIPLATIN
     Dosage: DAY1
     Route: 065
     Dates: start: 201308
  10. CAPECITABINE. [Suspect]
     Active Substance: CAPECITABINE
     Indication: COLON CANCER
     Dosage: IN THE MORNING AND EVENING FROM DAY1 TO DAY14 BID
     Route: 048
     Dates: start: 201308
  11. BEVACIZUMAB. [Suspect]
     Active Substance: BEVACIZUMAB
     Indication: METASTASES TO LUNG
  12. CAPECITABINE. [Suspect]
     Active Substance: CAPECITABINE
     Indication: METASTASES TO LIVER
  13. IRINOTECAN [Concomitant]
     Active Substance: IRINOTECAN
     Route: 065
     Dates: start: 201504, end: 201707

REACTIONS (2)
  - Bone marrow failure [Unknown]
  - Gastrointestinal disorder [Unknown]
